FAERS Safety Report 7391996-7 (Version None)
Quarter: 2011Q2

REPORT INFORMATION
  Report Type: 
  Country: None (occurrence: None)
  Receive Date: 20110404
  Receipt Date: 20110325
  Transmission Date: 20111010
  Serious: Yes (Hospitalization)
  Sender: FDA-Public Use
  Company Number: US-EISAI INC-E3810-04570-SPO-US

PATIENT
  Age: 26 Year
  Sex: Female

DRUGS (2)
  1. ACIPHEX [Suspect]
  2. ACIPHEX [Suspect]
     Indication: ULCER
     Dosage: UNKNOWN
     Route: 048

REACTIONS (1)
  - PANCREATITIS ACUTE [None]
